FAERS Safety Report 24413601 (Version 1)
Quarter: 2024Q4

REPORT INFORMATION
  Report Type: Spontaneous
  Country: PT (occurrence: PT)
  Receive Date: 20241008
  Receipt Date: 20241008
  Transmission Date: 20250115
  Serious: Yes (Other)
  Sender: TEVA
  Company Number: None

PATIENT
  Age: 62 Year
  Sex: Female
  Weight: 48 kg

DRUGS (3)
  1. SULFAMETHOXAZOLE\TRIMETHOPRIM [Suspect]
     Active Substance: SULFAMETHOXAZOLE\TRIMETHOPRIM
     Indication: Antifungal prophylaxis
     Dosage: 200 MG DAILY OF ANFO B EV, 1000 MG ORAL FLUCYTOSINE EVERY 6 HOURS, 960 MG /DAY OF TMP-SMX, STRENG...
     Route: 048
     Dates: start: 20240724, end: 20240804
  2. AMBISOME [Suspect]
     Active Substance: AMPHOTERICIN B
     Indication: Disseminated cryptococcosis
     Dosage: 200 MG DAILY OF ANFO B EV, 1000 MG ORAL FLUCYTOSINE EVERY 6 HOURS, 960 MG /DAY OF TMP-SMX,?AMBISO...
     Route: 042
     Dates: start: 20240724, end: 20240804
  3. FLUCYTOSINE [Suspect]
     Active Substance: FLUCYTOSINE
     Indication: Disseminated cryptococcosis
     Dosage: 200 MG DAILY OF ANFO B EV, 1000 MG ORAL FLUCYTOSINE EVERY 6 HOURS, 960 MG /DAY OF TMP-SMX
     Route: 048
     Dates: start: 20240724, end: 20240804

REACTIONS (1)
  - Toxic skin eruption [Recovered/Resolved]

NARRATIVE: CASE EVENT DATE: 20240801
